FAERS Safety Report 24959426 (Version 2)
Quarter: 2025Q1

REPORT INFORMATION
  Report Type: Spontaneous
  Country: DE (occurrence: DE)
  Receive Date: 20250212
  Receipt Date: 20250306
  Transmission Date: 20250409
  Serious: No
  Sender: SANOFI AVENTIS
  Company Number: DE-SA-2025SA041035

PATIENT
  Age: 79 Year
  Sex: Female

DRUGS (2)
  1. DUPIXENT [Suspect]
     Active Substance: DUPILUMAB
     Indication: Dermatitis atopic
  2. DUPIXENT [Suspect]
     Active Substance: DUPILUMAB
     Dosage: 300MG; EVERY 2 WEEKS
     Dates: start: 202408

REACTIONS (1)
  - No adverse event [Unknown]
